FAERS Safety Report 26151873 (Version 1)
Quarter: 2025Q4

REPORT INFORMATION
  Report Type: Spontaneous
  Country: CO (occurrence: CO)
  Receive Date: 20251214
  Receipt Date: 20251214
  Transmission Date: 20260118
  Serious: Yes (Other)
  Sender: BIOMARIN
  Company Number: CO-BIOMARINAP-CO-2025-170602

PATIENT
  Age: 16 Year
  Sex: Male
  Weight: 17.3 kg

DRUGS (1)
  1. VIMIZIM [Suspect]
     Active Substance: ELOSULFASE ALFA
     Indication: Mucopolysaccharidosis IV
     Dosage: UNK, QW
     Dates: start: 20120803

REACTIONS (3)
  - Spinal cord compression [Unknown]
  - Walking disability [Unknown]
  - Reflexes abnormal [Unknown]

NARRATIVE: CASE EVENT DATE: 20251204
